FAERS Safety Report 10160085 (Version 2)
Quarter: 2015Q1

REPORT INFORMATION
  Report Type: Spontaneous
  Country: US (occurrence: US)
  Receive Date: 20140508
  Receipt Date: 20150206
  Transmission Date: 20150720
  Serious: No
  Sender: FDA-Public Use
  Company Number: US-GLAXOSMITHKLINE-A1063963A

PATIENT
  Age: 66 Year
  Sex: Female
  Weight: 108.84 kg

DRUGS (2)
  1. TYKERB [Suspect]
     Active Substance: LAPATINIB DITOSYLATE
     Indication: BREAST CANCER
     Dosage: TAKES 1250 MG (5 X 250 MG) TABLETS ON DAYS 1-21 IN COMBO WITH XELODA TABLETS DAYS 1-14, THEN RE[...]
     Route: 048
     Dates: start: 20140110
  2. XELODA TABLET [Suspect]
     Active Substance: CAPECITABINE
     Indication: BREAST CANCER
     Dosage: TAKES XELODA TABLETS ON DAYS 1-14
     Route: 065

REACTIONS (4)
  - Drug dose omission [Unknown]
  - Stomatitis [Unknown]
  - Diarrhoea [Unknown]
  - Adverse drug reaction [Unknown]

NARRATIVE: CASE EVENT DATE: 201401
